FAERS Safety Report 6260196-6 (Version None)
Quarter: 2009Q3

REPORT INFORMATION
  Report Type: 
  Country: None (occurrence: None)
  Receive Date: 20090708
  Receipt Date: 20090701
  Transmission Date: 20100115
  Serious: Yes (Life-Threatening, Hospitalization)
  Sender: FDA-Public Use
  Company Number: B0572408A

PATIENT
  Age: 84 Year
  Sex: Male

DRUGS (11)
  1. ARTIST [Suspect]
     Indication: HYPERTENSION
     Route: 048
     Dates: start: 20080512
  2. HERBESSER [Suspect]
     Indication: DRUG USE FOR UNKNOWN INDICATION
     Dosage: 100MG PER DAY
     Route: 048
     Dates: start: 20090406, end: 20090408
  3. OLMETEC [Suspect]
     Indication: HYPERTENSION
     Dosage: 20MG TWICE PER DAY
     Dates: start: 20061218
  4. CALBLOCK [Suspect]
     Indication: HYPERTENSION
     Dosage: 16MG PER DAY
     Route: 048
     Dates: start: 20061218
  5. ATELEC [Suspect]
     Indication: DRUG USE FOR UNKNOWN INDICATION
     Dosage: 10MG PER DAY
     Route: 048
     Dates: start: 20070115
  6. NATRILIX [Suspect]
     Indication: DRUG USE FOR UNKNOWN INDICATION
     Dosage: 2MG TWICE PER DAY
     Route: 048
     Dates: start: 20081208, end: 20090408
  7. TAKEPRON [Concomitant]
  8. AMARYL [Concomitant]
  9. BASEN [Concomitant]
  10. ACTOS [Concomitant]
     Dates: start: 20080922
  11. RAMOSETRON [Concomitant]
     Dates: start: 20070216

REACTIONS (4)
  - ARRHYTHMIA [None]
  - BRADYCARDIA [None]
  - HYPERKALAEMIA [None]
  - RENAL IMPAIRMENT [None]
